FAERS Safety Report 4752239-3 (Version None)
Quarter: 2005Q3

REPORT INFORMATION
  Report Type: 
  Country: None (occurrence: None)
  Receive Date: 20050825
  Receipt Date: 20050516
  Transmission Date: 20060218
  Serious: No
  Sender: FDA-Public Use
  Company Number: US-GLAXOSMITHKLINE-A0558804A

PATIENT
  Age: 80 Year
  Sex: Female

DRUGS (5)
  1. LOTRONEX [Suspect]
     Indication: IRRITABLE BOWEL SYNDROME
     Dosage: 1MG PER DAY
     Route: 048
     Dates: start: 20000101
  2. PREMARIN [Concomitant]
  3. BENICAR [Concomitant]
  4. UNKNOWN MEDICATION [Concomitant]
  5. NORVASC [Concomitant]

REACTIONS (1)
  - SYSTOLIC HYPERTENSION [None]
